FAERS Safety Report 9379116 (Version 1)
Quarter: 2013Q2

REPORT INFORMATION
  Report Type: Spontaneous
  Country: US (occurrence: None)
  Receive Date: 20130626
  Receipt Date: 20130626
  Transmission Date: 20140414
  Serious: Yes (Other)
  Sender: FDA-Public Use
  Company Number: 001555755A

PATIENT
  Age: 50 Year
  Sex: Female

DRUGS (5)
  1. MB ANTIOXIDANT DAY CREME SPF 20 [Suspect]
     Dosage: DERMAL
     Dates: start: 20130521, end: 20130527
  2. MB* ANTIOXIDANT DAY CREME SPF 20 [Suspect]
     Dosage: DERMAL
     Dates: start: 20130521, end: 20130527
  3. ESTROGEN [Concomitant]
  4. VITAMIN C [Concomitant]
  5. MULTI VITAMIN [Concomitant]

REACTIONS (3)
  - Urticaria [None]
  - Anaphylactic reaction [None]
  - Dyspnoea [None]
